FAERS Safety Report 20264875 (Version 1)
Quarter: 2021Q4

REPORT INFORMATION
  Report Type: Spontaneous
  Country: US (occurrence: None)
  Receive Date: 20211230
  Receipt Date: 20211230
  Transmission Date: 20220304
  Serious: Yes (Hospitalization)
  Sender: FDA-Public Use
  Company Number: None

PATIENT
  Sex: Female

DRUGS (5)
  1. DIMETHYL FUMARATE [Suspect]
     Active Substance: DIMETHYL FUMARATE
     Indication: Multiple sclerosis
     Dosage: FREQUENCY : TWICE A DAY;??TAKE 1 CAPSULE BY MOUTH TWICE DAILY
     Route: 048
     Dates: start: 20200930
  2. MIRTAZAPINE TAB [Concomitant]
  3. PRILOSEC OTC TAB [Concomitant]
  4. PROZAC CAP [Concomitant]
  5. TRAMADOL HCL TAB [Concomitant]

REACTIONS (4)
  - Walking aid user [None]
  - Muscular weakness [None]
  - Gait disturbance [None]
  - Therapy interrupted [None]
